FAERS Safety Report 25451491 (Version 1)
Quarter: 2025Q2

REPORT INFORMATION
  Report Type: Spontaneous
  Country: GB (occurrence: GB)
  Receive Date: 20250618
  Receipt Date: 20250618
  Transmission Date: 20250717
  Serious: Yes (Disabling, Other)
  Sender: PFIZER
  Company Number: None

PATIENT
  Sex: Female

DRUGS (1)
  1. DEPO-PROVERA [Suspect]
     Active Substance: MEDROXYPROGESTERONE ACETATE
     Dates: start: 20220509, end: 20240309

REACTIONS (10)
  - Vaginal haemorrhage [Not Recovered/Not Resolved]
  - Product communication issue [Unknown]
  - Amenorrhoea [Unknown]
  - Weight increased [Unknown]
  - Depression [Unknown]
  - Menometrorrhagia [Unknown]
  - Dysmenorrhoea [Unknown]
  - Dizziness [Unknown]
  - Anaemia [Unknown]
  - Fatigue [Unknown]

NARRATIVE: CASE EVENT DATE: 20250302
